FAERS Safety Report 16905045 (Version 1)
Quarter: 2019Q4

REPORT INFORMATION
  Report Type: Spontaneous
  Country: US (occurrence: US)
  Receive Date: 20191010
  Receipt Date: 20191010
  Transmission Date: 20200122
  Serious: Yes (Other)
  Sender: FDA-Public Use
  Company Number: None

PATIENT
  Age: 60 Year
  Sex: Female

DRUGS (10)
  1. SULFASALAZIN TAB 500 MG [Concomitant]
  2. HYDROCHLOROT TAB 81 MG EC [Concomitant]
  3. XELJANZ [Suspect]
     Active Substance: TOFACITINIB CITRATE
     Indication: PSORIATIC ARTHROPATHY
     Route: 048
     Dates: start: 20190417
  4. HYDROCO/APAP TAB 7.5/325 [Concomitant]
  5. ONDANSETRON TAB 4 MG [Concomitant]
  6. ASPIRIN LOW TAB 81 MG EC [Concomitant]
  7. LIDOCAINE OIN 5 % [Concomitant]
  8. GABAPENTIN CAP 300 MG [Concomitant]
  9. DULOXETINE CAP 60 MG [Concomitant]
  10. METOPROLOL TAR TAB 50 MG [Concomitant]

REACTIONS (2)
  - Surgery [None]
  - Therapy cessation [None]

NARRATIVE: CASE EVENT DATE: 20190927
